FAERS Safety Report 8452618-7 (Version None)
Quarter: 2012Q2

REPORT INFORMATION
  Report Type: 
  Country: None (occurrence: None)
  Receive Date: 20120620
  Receipt Date: 20120420
  Transmission Date: 20120825
  Serious: No
  Sender: FDA-Public Use
  Company Number: US-VERTEX PHARMACEUTICALS INC.-AE-2012-005695

PATIENT
  Sex: Female
  Weight: 83.99 kg

DRUGS (3)
  1. RIBAVIRIN [Concomitant]
     Indication: HEPATITIS C
     Dates: start: 20120215
  2. PEGASYS [Concomitant]
     Indication: HEPATITIS C
     Dates: start: 20120215
  3. INCIVEK [Suspect]
     Indication: HEPATITIS C
     Route: 048
     Dates: start: 20120215

REACTIONS (7)
  - PLATELET COUNT DECREASED [None]
  - WHITE BLOOD CELL COUNT DECREASED [None]
  - ERYTHEMA [None]
  - ORAL FUNGAL INFECTION [None]
  - MALAISE [None]
  - SKIN BURNING SENSATION [None]
  - PRURITUS [None]
